FAERS Safety Report 9121139 (Version 1)
Quarter: 2013Q1

REPORT INFORMATION
  Report Type: Spontaneous
  Country: US (occurrence: US)
  Receive Date: 20130226
  Receipt Date: 20130226
  Transmission Date: 20140127
  Serious: Yes (Other)
  Sender: FDA-Public Use
  Company Number: US-AMGEN-USASP2013013079

PATIENT
  Age: 54 Year
  Sex: Female
  Weight: 81.63 kg

DRUGS (13)
  1. ENBREL [Suspect]
     Indication: RHEUMATOID ARTHRITIS
     Dosage: 50 MG, QWK
     Route: 058
     Dates: start: 20080101
  2. ARMOUR THYROID [Concomitant]
     Dosage: 60 MG, UNK
     Route: 048
  3. PROGESTERONE [Concomitant]
     Dosage: 100 MG, UNK
     Route: 048
  4. ESTROGEL [Concomitant]
     Dosage: UNK
  5. CORTISOL                           /00014602/ [Concomitant]
     Dosage: UNK
     Route: 048
  6. METHOTREXATE [Concomitant]
     Dosage: 2.5 MG, UNK
     Route: 048
  7. VITAMIN D /00107901/ [Concomitant]
     Dosage: 400 UNIT, UNK
     Route: 048
  8. CALCIUM [Concomitant]
     Dosage: 500 UNK, UNK
     Route: 048
  9. VITAMIN C                          /00008001/ [Concomitant]
     Dosage: 500 MG, UNK
     Route: 048
  10. VITAMIN E                          /00110501/ [Concomitant]
     Dosage: 1000 UNIT, UNK
     Route: 048
  11. MAGNESIUM [Concomitant]
     Dosage: 200 MG, UNK
     Route: 048
  12. FOLIC ACID [Concomitant]
     Dosage: UNK
     Route: 048
  13. ESTRADIOL [Concomitant]
     Dosage: 1 MG, UNK
     Route: 048

REACTIONS (9)
  - Depression [Not Recovered/Not Resolved]
  - Pain [Recovered/Resolved]
  - Ear pain [Recovered/Resolved]
  - Sinus congestion [Recovered/Resolved]
  - Facial pain [Recovered/Resolved]
  - Sinusitis [Unknown]
  - Lymphadenopathy [Recovered/Resolved]
  - Ear infection [Recovered/Resolved]
  - Injection site induration [Not Recovered/Not Resolved]
